FAERS Safety Report 9813610 (Version 1)
Quarter: 2014Q1

REPORT INFORMATION
  Report Type: Spontaneous
  Country: GB (occurrence: GB)
  Receive Date: 20140113
  Receipt Date: 20140113
  Transmission Date: 20141002
  Serious: Yes (Hospitalization)
  Sender: FDA-Public Use
  Company Number: GB-TEVA-455399ISR

PATIENT
  Age: 82 Year
  Sex: Male
  Weight: 96.5 kg

DRUGS (8)
  1. ATORVASTATIN [Suspect]
     Indication: PROPHYLAXIS
     Route: 048
  2. TAMSULOSIN [Concomitant]
     Dosage: TAKEN IN THE MORNING.
  3. FINASTERIDE [Concomitant]
     Dosage: TAKEN IN THE MORNING.
  4. CLOPIDOGREL [Concomitant]
     Dosage: TAKEN IN THE MORNING.
  5. CALCICHEW D3 [Concomitant]
  6. PARACETAMOL [Concomitant]
  7. RAMIPRIL [Concomitant]
     Dosage: TAKEN AT NIGHT.
  8. FUROSEMIDE [Concomitant]
     Dosage: TAKEN IN THE MORNING.

REACTIONS (3)
  - Myositis [Recovering/Resolving]
  - Blood creatine phosphokinase increased [Unknown]
  - Blood creatinine increased [Unknown]
